FAERS Safety Report 18026919 (Version 1)
Quarter: 2020Q3

REPORT INFORMATION
  Report Type: Spontaneous
  Country: HR (occurrence: HR)
  Receive Date: 20200716
  Receipt Date: 20200716
  Transmission Date: 20201103
  Serious: Yes (Other)
  Sender: FDA-Public Use
  Company Number: HR-TEVA-2020-HR-1799416

PATIENT
  Age: 35 Year
  Sex: Female
  Weight: 50 kg

DRUGS (1)
  1. COPAXONE [Suspect]
     Active Substance: GLATIRAMER ACETATE
     Indication: MULTIPLE SCLEROSIS
     Dosage: 40 MG / ML
     Route: 058
     Dates: start: 20190225

REACTIONS (6)
  - Neck pain [Unknown]
  - Pyrexia [Recovered/Resolved]
  - Pollakiuria [Unknown]
  - Feeling hot [Unknown]
  - Oropharyngeal pain [Recovering/Resolving]
  - Chills [Unknown]

NARRATIVE: CASE EVENT DATE: 2019
